FAERS Safety Report 8158766-3 (Version None)
Quarter: 2012Q1

REPORT INFORMATION
  Report Type: 
  Country: None (occurrence: None)
  Receive Date: 20120223
  Receipt Date: 20120217
  Transmission Date: 20120608
  Serious: Yes (Other)
  Sender: FDA-Public Use
  Company Number: BR-PFIZER INC-2012043253

PATIENT
  Age: 41 Year
  Sex: Female

DRUGS (1)
  1. XALATAN [Suspect]
     Indication: OCULAR HYPERTENSION
     Dosage: 3 UG (ONE DROP IN BOTH EYES), 1X/DAY
     Route: 047
     Dates: start: 20111101

REACTIONS (6)
  - SWELLING FACE [None]
  - SLEEP DISORDER [None]
  - VISION BLURRED [None]
  - ERYTHEMA [None]
  - ABDOMINAL PAIN UPPER [None]
  - HEART RATE INCREASED [None]
